FAERS Safety Report 19072782 (Version 1)
Quarter: 2021Q1

REPORT INFORMATION
  Report Type: Spontaneous
  Country: US (occurrence: US)
  Receive Date: 20210330
  Receipt Date: 20210330
  Transmission Date: 20210420
  Serious: Yes (Death, Hospitalization)
  Sender: FDA-Public Use
  Company Number: None

PATIENT
  Sex: Female

DRUGS (10)
  1. VINCRISTINE SULFATE. [Suspect]
     Active Substance: VINCRISTINE SULFATE
     Dates: end: 20190201
  2. METHOTREXATE. [Suspect]
     Active Substance: METHOTREXATE
     Dates: end: 20190715
  3. RITUXIMAB (MOAB C2B8 ANTI CD20, CHIMERIC) [Suspect]
     Active Substance: RITUXIMAB
     Dates: start: 20190117
  4. ONCASPAR [Suspect]
     Active Substance: PEGASPARGASE
     Dosage: 1568 IU
     Dates: end: 20190718
  5. DAUNORUBICIN [Suspect]
     Active Substance: DAUNORUBICIN
     Dates: end: 20190201
  6. MERCAPTOPURINE. [Suspect]
     Active Substance: MERCAPTOPURINE
     Dates: end: 20190430
  7. CYTARABINE. [Suspect]
     Active Substance: CYTARABINE
     Dates: end: 20190718
  8. CYCLOPHOSPHAMIDE. [Suspect]
     Active Substance: CYCLOPHOSPHAMIDE
     Dates: end: 20190408
  9. ETOPOSIDE (VP?16) [Suspect]
     Active Substance: ETOPOSIDE
     Dates: end: 20190718
  10. DEXAMETHASONE. [Suspect]
     Active Substance: DEXAMETHASONE
     Dates: end: 20190116

REACTIONS (19)
  - Diarrhoea [None]
  - Contusion [None]
  - Blood culture positive [None]
  - General physical health deterioration [None]
  - Pulse absent [None]
  - Decreased appetite [None]
  - Oxygen saturation decreased [None]
  - Refusal of treatment by patient [None]
  - Hypotension [None]
  - Confusional state [None]
  - Fall [None]
  - Acidosis [None]
  - Acute kidney injury [None]
  - Unresponsive to stimuli [None]
  - Injury [None]
  - Hypophagia [None]
  - Pain in extremity [None]
  - Proteus test positive [None]
  - Cardiac arrest [None]
